FAERS Safety Report 7122288-9 (Version None)
Quarter: 2010Q4

REPORT INFORMATION
  Report Type: 
  Country: None (occurrence: None)
  Receive Date: 20101124
  Receipt Date: 20101118
  Transmission Date: 20110411
  Serious: Yes (Hospitalization)
  Sender: FDA-Public Use
  Company Number: JP-ABBOTT-10P-087-0686498-00

PATIENT
  Age: 29 Year
  Sex: Male

DRUGS (3)
  1. KALETRA [Suspect]
     Indication: HIV INFECTION
     Dosage: 4 TABLETS DAILY
     Route: 048
     Dates: start: 20080725, end: 20100319
  2. TRUVADA [Concomitant]
     Indication: HIV INFECTION
     Route: 048
     Dates: start: 20080725, end: 20100319
  3. ALLOPURINOL [Concomitant]
     Indication: HYPERURICAEMIA
     Dosage: 100MG DAILY
     Route: 048
     Dates: start: 20090805

REACTIONS (5)
  - BASEDOW'S DISEASE [None]
  - DIARRHOEA [None]
  - NAUSEA [None]
  - PYREXIA [None]
  - THYROID FUNCTION TEST ABNORMAL [None]
